FAERS Safety Report 12520371 (Version 1)
Quarter: 2016Q3

REPORT INFORMATION
  Report Type: Spontaneous
  Country: DE (occurrence: DE)
  Receive Date: 20160701
  Receipt Date: 20160701
  Transmission Date: 20161109
  Serious: Yes (Death, Life-Threatening, Hospitalization)
  Sender: FDA-Public Use
  Company Number: DE-ACCORD-042018

PATIENT
  Age: 69 Year
  Sex: Male

DRUGS (8)
  1. METHOTREXATE. [Suspect]
     Active Substance: METHOTREXATE
     Indication: RHEUMATOID ARTHRITIS
     Dosage: 15 MG 2 IN 1 DAY, 1-0-1
     Route: 048
  2. FOLSAEURE [Concomitant]
     Active Substance: FOLIC ACID
  3. AMLODIPINE [Concomitant]
     Active Substance: AMLODIPINE BESYLATE
  4. HYDROCHLOROTHIAZIDE. [Concomitant]
     Active Substance: HYDROCHLOROTHIAZIDE
  5. PREDNISOLONE. [Concomitant]
     Active Substance: PREDNISOLONE
  6. RAMIPRIL. [Concomitant]
     Active Substance: RAMIPRIL
  7. OMEPRAZOLE. [Concomitant]
     Active Substance: OMEPRAZOLE
  8. ALENDRONIC ACID [Concomitant]
     Active Substance: ALENDRONIC ACID

REACTIONS (6)
  - Pancytopenia [Fatal]
  - Sepsis [Fatal]
  - Acute kidney injury [Fatal]
  - Dehydration [Fatal]
  - Accidental poisoning [Fatal]
  - Gastroenteritis [Fatal]

NARRATIVE: CASE EVENT DATE: 2016
